FAERS Safety Report 5170432-5 (Version None)
Quarter: 2006Q4

REPORT INFORMATION
  Report Type: 
  Country: None (occurrence: None)
  Receive Date: 20061212
  Receipt Date: 20060908
  Transmission Date: 20070319
  Serious: Yes (Hospitalization)
  Sender: FDA-Public Use
  Company Number: AU-ROXANE LABORATORIES, INC-2006-DE-04843GD

PATIENT

DRUGS (2)
  1. PREDNISONE TAB [Suspect]
     Indication: RHEUMATOID ARTHRITIS
  2. CHAPERONIN 10 [Suspect]
     Indication: RHEUMATOID ARTHRITIS
     Dosage: TREATMENT GROUPS WITH DOSES OF 5 MG, 7.5 MG, AND 10 MG
     Route: 042

REACTIONS (1)
  - CELLULITIS [None]
